FAERS Safety Report 6688381-X (Version None)
Quarter: 2010Q2

REPORT INFORMATION
  Report Type: 
  Country: None (occurrence: None)
  Receive Date: 20100420
  Receipt Date: 20100413
  Transmission Date: 20101027
  Serious: Yes (Other)
  Sender: FDA-Public Use
  Company Number: PHHY2010AT23071

PATIENT
  Sex: Male

DRUGS (1)
  1. RASILEZ [Suspect]
     Dosage: UNK

REACTIONS (5)
  - AGITATION [None]
  - BRONCHITIS [None]
  - DISCOMFORT [None]
  - DYSPNOEA [None]
  - INFLAMMATION [None]
